FAERS Safety Report 4483038-8 (Version None)
Quarter: 2004Q3

REPORT INFORMATION
  Report Type: 
  Country: None (occurrence: None)
  Receive Date: 20040921
  Receipt Date: 20040512
  Transmission Date: 20050211
  Serious: Yes (Death, Hospitalization)
  Sender: FDA-Public Use
  Company Number: 163-20785-04050274 (0)

PATIENT
  Age: 73 Year
  Sex: Female

DRUGS (4)
  1. THALOMID [Suspect]
     Indication: NON-HODGKIN'S LYMPHOMA
     Dosage: 100 MG QD ORAL
     Route: 048
     Dates: start: 20031112, end: 20040101
  2. STEROID [Concomitant]
  3. RADIATION THERAPY [Concomitant]
  4. REHABILITATION [Concomitant]

REACTIONS (3)
  - DEATH [None]
  - DEEP VEIN THROMBOSIS [None]
  - DISEASE PROGRESSION [None]
